FAERS Safety Report 13841961 (Version 1)
Quarter: 2017Q3

REPORT INFORMATION
  Report Type: Report from Study
  Country: US (occurrence: US)
  Receive Date: 20170807
  Receipt Date: 20170807
  Transmission Date: 20171127
  Serious: No
  Sender: FDA-Public Use
  Company Number: US-AMGEN-USASL2016086085

PATIENT
  Age: 67 Year
  Sex: Male

DRUGS (1)
  1. NPLATE [Suspect]
     Active Substance: ROMIPLOSTIM
     Indication: IMMUNE THROMBOCYTOPENIC PURPURA
     Dosage: 3 MUG/KG (250 MCG), Q2WK
     Route: 065
     Dates: start: 2014

REACTIONS (6)
  - Contusion [Unknown]
  - Injury [Unknown]
  - Platelet count abnormal [Unknown]
  - Stress [Unknown]
  - Cough [Recovered/Resolved]
  - Off label use [Unknown]
